FAERS Safety Report 6703817-3 (Version None)
Quarter: 2010Q2

REPORT INFORMATION
  Report Type: 
  Country: None (occurrence: None)
  Receive Date: 20100430
  Receipt Date: 20100420
  Transmission Date: 20101027
  Serious: Yes (Other)
  Sender: FDA-Public Use
  Company Number: AU-PFIZER INC-2010049919

PATIENT
  Age: 56 Year
  Sex: Male

DRUGS (2)
  1. LIPITOR [Suspect]
     Indication: BLOOD CHOLESTEROL INCREASED
     Dosage: 40 MG, UNK
     Route: 048
  2. CRESTOR [Suspect]
     Dosage: 10 MG, UNK

REACTIONS (2)
  - INFLAMMATION [None]
  - MUSCLE SPASMS [None]
